FAERS Safety Report 7491428-4 (Version None)
Quarter: 2011Q2

REPORT INFORMATION
  Report Type: 
  Country: None (occurrence: None)
  Receive Date: 20110519
  Receipt Date: 20110509
  Transmission Date: 20111010
  Serious: Yes (Other)
  Sender: FDA-Public Use
  Company Number: PHHY2011DE32335

PATIENT
  Sex: Male
  Weight: 85 kg

DRUGS (5)
  1. EXELON [Suspect]
     Indication: DEMENTIA
     Dosage: 4.6 MG PER 24 HRS
     Route: 062
     Dates: start: 20110331, end: 20110403
  2. ISICOM [Concomitant]
     Indication: PARKINSON'S DISEASE
     Dosage: 425 MG, DAILY
     Route: 048
  3. EXELON [Suspect]
     Dosage: 4.6 MG PER 24 HOURS
     Route: 062
  4. CLOZAPINE [Concomitant]
     Indication: HALLUCINATION
     Dosage: 37.5 MG, DAILY
  5. LISKANTIN [Concomitant]
     Indication: TREMOR
     Dosage: 125 MG, DAILY
     Route: 048

REACTIONS (1)
  - SPEECH DISORDER [None]
